FAERS Safety Report 5676263-1 (Version None)
Quarter: 2008Q1

REPORT INFORMATION
  Report Type: 
  Country: None (occurrence: None)
  Receive Date: 20080321
  Receipt Date: 20080307
  Transmission Date: 20080703
  Serious: Yes (Hospitalization)
  Sender: FDA-Public Use
  Company Number: US-GILEAD-2008-0015424

PATIENT
  Sex: Female
  Weight: 68.1 kg

DRUGS (11)
  1. LETAIRIS [Suspect]
     Indication: PULMONARY HYPERTENSION
     Route: 048
     Dates: end: 20080220
  2. CELLCEPT [Concomitant]
     Route: 048
  3. COZAAR [Concomitant]
     Route: 048
  4. XALATAN [Concomitant]
     Route: 048
  5. LASIX [Concomitant]
     Route: 048
  6. AMARYL [Concomitant]
     Route: 048
  7. FOLIC ACID [Concomitant]
     Route: 048
  8. CARDIZEM CD [Concomitant]
     Route: 048
  9. IRON [Concomitant]
     Route: 048
  10. ASPIRIN [Concomitant]
     Route: 048
  11. ZETIA [Concomitant]
     Route: 048

REACTIONS (5)
  - BLOOD COUNT ABNORMAL [None]
  - DYSPNOEA [None]
  - HAEMOPTYSIS [None]
  - NASAL CONGESTION [None]
  - PALPITATIONS [None]
